FAERS Safety Report 12527832 (Version 2)
Quarter: 2016Q3

REPORT INFORMATION
  Report Type: Spontaneous
  Country: US (occurrence: US)
  Receive Date: 20160705
  Receipt Date: 20160818
  Transmission Date: 20161109
  Serious: Yes (Death)
  Sender: FDA-Public Use
  Company Number: PHEH2016US016540

PATIENT
  Age: 64 Year
  Sex: Male

DRUGS (2)
  1. MEKINIST [Suspect]
     Active Substance: TRAMETINIB DIMETHYL SULFOXIDE
     Indication: MALAISE
  2. MEKINIST [Suspect]
     Active Substance: TRAMETINIB DIMETHYL SULFOXIDE
     Indication: METASTATIC MALIGNANT MELANOMA
     Dosage: 2 MG, QD
     Route: 048
     Dates: start: 20160621

REACTIONS (5)
  - Malignant neoplasm progression [Fatal]
  - Inappropriate affect [Unknown]
  - Speech disorder [Unknown]
  - Aphasia [Unknown]
  - Tremor [Unknown]

NARRATIVE: CASE EVENT DATE: 20160630
